FAERS Safety Report 16770156 (Version 1)
Quarter: 2019Q3

REPORT INFORMATION
  Report Type: Spontaneous
  Country: US (occurrence: US)
  Receive Date: 20190904
  Receipt Date: 20190904
  Transmission Date: 20191005
  Serious: No
  Sender: FDA-Public Use
  Company Number: US-009507513-1908USA010705

PATIENT
  Age: 33 Year
  Sex: Female

DRUGS (8)
  1. VORICONAZOLE. [Concomitant]
     Active Substance: VORICONAZOLE
     Dosage: 33 MICROGRAM, EVERY 3-5 DAYS IN EACH EYE; SEVEN DOSES
  2. VORICONAZOLE. [Concomitant]
     Active Substance: VORICONAZOLE
     Indication: FUSARIUM INFECTION
     Dosage: 4 MILLIGRAM/KILOGRAM, Q12H
  3. CANCIDAS [Suspect]
     Active Substance: CASPOFUNGIN ACETATE
     Dosage: 50 MILLIGRAM DAILY
     Route: 042
  4. AMPHOTERICIN B. [Concomitant]
     Active Substance: AMPHOTERICIN B
     Indication: FUSARIUM INFECTION
     Dosage: 5 MILLIGRAM/KILOGRAM
     Route: 042
  5. VORICONAZOLE. [Concomitant]
     Active Substance: VORICONAZOLE
     Dosage: 100 MICROGRAM; (BILATERAL INTRAVITREAL, AT THE TIME OF THE SURGERY)
  6. CANCIDAS [Suspect]
     Active Substance: CASPOFUNGIN ACETATE
     Indication: FUSARIUM INFECTION
     Dosage: UNK
  7. TERBINAFINE. [Concomitant]
     Active Substance: TERBINAFINE
     Indication: FUSARIUM INFECTION
     Dosage: 250 MILLIGRAM, QD
     Route: 048
  8. AMPHOTERICIN B. [Concomitant]
     Active Substance: AMPHOTERICIN B
     Dosage: 10 MICROGRAM; (BILATERAL INTRAVITREAL, AT THE TIME OF THE SURGERY)

REACTIONS (1)
  - Product use in unapproved indication [Unknown]
